FAERS Safety Report 5672702-0 (Version None)
Quarter: 2008Q1

REPORT INFORMATION
  Report Type: 
  Country: None (occurrence: None)
  Receive Date: 20080319
  Receipt Date: 20071214
  Transmission Date: 20080703
  Serious: No
  Sender: FDA-Public Use
  Company Number: US-KINGPHARMUSA00001-K200701621

PATIENT

DRUGS (6)
  1. ALTACE [Suspect]
     Indication: HYPERTENSION
     Dosage: 10 MG, BID
     Route: 048
     Dates: start: 20070101
  2. HYTRIN [Concomitant]
     Dosage: 2 MG, QHS
     Route: 048
  3. TOPROL-XL [Concomitant]
     Dosage: 100 MG, QHS
     Route: 048
  4. PROCARDIA [Concomitant]
     Dosage: 30 MG, QD IN AM
     Route: 048
  5. PLAVIX [Concomitant]
     Indication: PROPHYLAXIS
     Route: 048
     Dates: start: 20071201
  6. ASPIRIN [Concomitant]
     Indication: PROPHYLAXIS
     Route: 048
     Dates: start: 20071201

REACTIONS (1)
  - RASH [None]
